FAERS Safety Report 8338431-X (Version None)
Quarter: 2012Q1

REPORT INFORMATION
  Report Type: 
  Country: None (occurrence: None)
  Receive Date: 20120329
  Receipt Date: 20090512
  Transmission Date: 20120608
  Serious: Yes (Other)
  Sender: FDA-Public Use
  Company Number: PHEH2009US04712

PATIENT
  Sex: Male

DRUGS (2)
  1. NAMENDA [Suspect]
  2. EXELON [Suspect]
     Dosage: 9.5 MG, TRANSDERMAL
     Route: 062
     Dates: start: 20080301

REACTIONS (3)
  - DEPRESSION [None]
  - ANXIETY [None]
  - ABNORMAL DREAMS [None]
